FAERS Safety Report 15926443 (Version 2)
Quarter: 2019Q3

REPORT INFORMATION
  Report Type: Spontaneous
  Country: US (occurrence: US)
  Receive Date: 20190206
  Receipt Date: 20190819
  Transmission Date: 20191004
  Serious: No
  Sender: FDA-Public Use
  Company Number: US-MYLANLABS-2019M1005457

PATIENT
  Sex: Female
  Weight: 79.36 kg

DRUGS (1)
  1. ESTRADIOL TRANSDERMAL SYSTEM [Suspect]
     Active Substance: ESTRADIOL
     Indication: HOT FLUSH
     Dosage: UNK
     Route: 062
     Dates: start: 201807

REACTIONS (6)
  - Application site burn [Unknown]
  - Back pain [Unknown]
  - Application site erythema [Unknown]
  - Application site discolouration [Unknown]
  - Application site irritation [Unknown]
  - Application site exfoliation [Unknown]
